FAERS Safety Report 18753074 (Version 1)
Quarter: 2021Q1

REPORT INFORMATION
  Report Type: Report from Study
  Country: GB (occurrence: GB)
  Receive Date: 20210118
  Receipt Date: 20210118
  Transmission Date: 20210419
  Serious: Yes (Hospitalization, Other)
  Sender: FDA-Public Use
  Company Number: NVSC2020GB280232

PATIENT
  Sex: Male

DRUGS (1)
  1. COSENTYX [Suspect]
     Active Substance: SECUKINUMAB
     Indication: PSORIASIS
     Dosage: 300 MG, QMO
     Route: 058

REACTIONS (7)
  - Pain of skin [Unknown]
  - Psoriasis [Unknown]
  - Frustration tolerance decreased [Unknown]
  - Skin injury [Unknown]
  - Cellulitis [Unknown]
  - Rash [Unknown]
  - Product dose omission issue [Unknown]
